FAERS Safety Report 16938208 (Version 1)
Quarter: 2019Q4

REPORT INFORMATION
  Report Type: Report from Study
  Country: US (occurrence: US)
  Receive Date: 20191018
  Receipt Date: 20191018
  Transmission Date: 20200122
  Serious: Yes (Hospitalization)
  Sender: FDA-Public Use
  Company Number: US-BAUSCH-BL-2019-025748

PATIENT
  Age: 47 Year
  Sex: Male
  Weight: 154.36 kg

DRUGS (12)
  1. AMLODIPINE [Concomitant]
     Active Substance: AMLODIPINE BESYLATE
     Indication: PRODUCT USED FOR UNKNOWN INDICATION
     Route: 048
  2. METOPROLOL. [Concomitant]
     Active Substance: METOPROLOL
     Indication: PRODUCT USED FOR UNKNOWN INDICATION
     Route: 048
  3. VITAMIN D [Concomitant]
     Active Substance: VITAMIN D NOS
     Indication: PRODUCT USED FOR UNKNOWN INDICATION
     Dosage: AS DIRECTED
     Route: 048
  4. SILIQ [Suspect]
     Active Substance: BRODALUMAB
     Indication: PRODUCT USE IN UNAPPROVED INDICATION
  5. LISINOPRIL. [Concomitant]
     Active Substance: LISINOPRIL
     Indication: PRODUCT USED FOR UNKNOWN INDICATION
     Route: 048
  6. TREMFYA [Suspect]
     Active Substance: GUSELKUMAB
     Indication: PSORIATIC ARTHROPATHY
     Dosage: SINGLE DOSE
     Route: 058
     Dates: start: 201909, end: 201909
  7. IBUPROFEN. [Concomitant]
     Active Substance: IBUPROFEN
     Indication: PRODUCT USED FOR UNKNOWN INDICATION
     Dosage: AS NEEDED
     Route: 048
  8. METHOTREXATE. [Concomitant]
     Active Substance: METHOTREXATE
     Indication: PRODUCT USED FOR UNKNOWN INDICATION
     Dosage: AS DIRECTED
     Route: 058
     Dates: start: 201909
  9. SILIQ [Suspect]
     Active Substance: BRODALUMAB
     Indication: PSORIATIC ARTHROPATHY
     Dosage: SYRINGE, FIRST SINGLE DOSE; WEEKS 0,1 AND 2 FOLLOWED BY EVERY 2 WEEK
     Route: 058
     Dates: start: 20190828, end: 20190828
  10. CITALOPRAM [Concomitant]
     Active Substance: CITALOPRAM HYDROBROMIDE
     Indication: PRODUCT USED FOR UNKNOWN INDICATION
     Route: 048
  11. LASIX [Concomitant]
     Active Substance: FUROSEMIDE
     Indication: PRODUCT USED FOR UNKNOWN INDICATION
     Dosage: AS NEEDED
     Route: 048
  12. XELJANZ [Suspect]
     Active Substance: TOFACITINIB CITRATE
     Indication: PSORIATIC ARTHROPATHY
     Dosage: STARTED APPROXIMATELY 6 MONTHS AGO
     Route: 048
     Dates: start: 2019, end: 201909

REACTIONS (3)
  - Gait disturbance [Unknown]
  - Product use in unapproved indication [Unknown]
  - Arthritis [Recovering/Resolving]

NARRATIVE: CASE EVENT DATE: 2019
